FAERS Safety Report 13386678 (Version 1)
Quarter: 2017Q1

REPORT INFORMATION
  Report Type: Spontaneous
  Country: US (occurrence: US)
  Receive Date: 20170330
  Receipt Date: 20170330
  Transmission Date: 20170429
  Serious: No
  Sender: FDA-Public Use
  Company Number: US-PFIZER INC-2017136679

PATIENT
  Age: 63 Year
  Sex: Female
  Weight: 52 kg

DRUGS (5)
  1. LYRICA [Suspect]
     Active Substance: PREGABALIN
     Dosage: 25 MG, THREE TIMES A DAY (50MG IN THE MORNING AND 25MG AT NIGHT)
     Dates: start: 20170217
  2. ALPRAZOLAM. [Concomitant]
     Active Substance: ALPRAZOLAM
     Indication: ANXIETY
     Dosage: 0.25 MG, UNK (1-2 TABLETS THREE TIMES A DAY)
     Route: 048
     Dates: end: 20170228
  3. LYRICA [Suspect]
     Active Substance: PREGABALIN
     Dosage: 50 MG, TWICE A DAY
     Dates: start: 20170309
  4. LYRICA [Suspect]
     Active Substance: PREGABALIN
     Indication: NEURALGIA
     Dosage: 25 MG, UNK
     Dates: start: 20161219, end: 20170217
  5. ALPRAZOLAM. [Concomitant]
     Active Substance: ALPRAZOLAM
     Dosage: 0.5 MG, AS NEEDED
     Route: 048
     Dates: start: 20170228

REACTIONS (1)
  - Drug ineffective [Unknown]
